FAERS Safety Report 14221380 (Version 4)
Quarter: 2018Q1

REPORT INFORMATION
  Report Type: Spontaneous
  Country: US (occurrence: US)
  Receive Date: 20171124
  Receipt Date: 20180308
  Transmission Date: 20180508
  Serious: No
  Sender: FDA-Public Use
  Company Number: US-PFIZER INC-2017506067

PATIENT
  Age: 67 Year
  Sex: Female
  Weight: 91 kg

DRUGS (2)
  1. IBRANCE [Suspect]
     Active Substance: PALBOCICLIB
     Dosage: 125 MG, CYCLIC (DAYS 1-21 Q28 DAYS)
     Route: 048
     Dates: start: 20171113
  2. IBRANCE [Suspect]
     Active Substance: PALBOCICLIB
     Indication: BREAST CANCER METASTATIC
     Dosage: 125 MG, CYCLIC (DAYS 1-21 Q28 DAYS)
     Route: 048
     Dates: start: 20171109

REACTIONS (7)
  - Asthenia [Unknown]
  - Oral pain [Unknown]
  - Blood count abnormal [Unknown]
  - Nasopharyngitis [Unknown]
  - Epistaxis [Unknown]
  - White blood cell count decreased [Unknown]
  - Nausea [Unknown]

NARRATIVE: CASE EVENT DATE: 2017
